FAERS Safety Report 7796568-8 (Version None)
Quarter: 2011Q4

REPORT INFORMATION
  Report Type: 
  Country: None (occurrence: None)
  Receive Date: 20111005
  Receipt Date: 20110929
  Transmission Date: 20120403
  Serious: Yes (Other)
  Sender: FDA-Public Use
  Company Number: US-PFIZER INC-2010060002

PATIENT
  Sex: Female
  Weight: 64.85 kg

DRUGS (8)
  1. TOPAMAX [Concomitant]
     Indication: BIPOLAR DISORDER
     Dosage: UNK
  2. PROZAC [Concomitant]
     Indication: BIPOLAR DISORDER
     Dosage: UNK
  3. LYRICA [Suspect]
     Indication: FIBROMYALGIA
     Dosage: 75 MG, 1X/DAY
     Route: 048
     Dates: start: 20090101
  4. LYRICA [Suspect]
     Dosage: UNK
  5. XANAX [Suspect]
  6. EFFEXOR [Concomitant]
     Indication: BIPOLAR DISORDER
     Dosage: UNK
  7. LYRICA [Suspect]
     Indication: BIPOLAR DISORDER
     Dosage: 100 MG, 3X/DAY
     Route: 048
     Dates: end: 20100501
  8. EFFEXOR XR [Suspect]
     Dosage: UNK
     Dates: end: 20110101

REACTIONS (5)
  - IRRITABILITY [None]
  - MOOD ALTERED [None]
  - AGITATION [None]
  - THINKING ABNORMAL [None]
  - MENTAL IMPAIRMENT [None]
